FAERS Safety Report 8310448-0 (Version None)
Quarter: 2012Q2

REPORT INFORMATION
  Report Type: 
  Country: None (occurrence: None)
  Receive Date: 20120425
  Receipt Date: 20120418
  Transmission Date: 20120825
  Serious: Yes (Other)
  Sender: FDA-Public Use
  Company Number: BR-ROCHE-1004638

PATIENT
  Sex: Female
  Weight: 71 kg

DRUGS (9)
  1. PREDNISOLONE [Concomitant]
     Indication: PREMEDICATION
  2. SIMVASTATIN [Concomitant]
  3. MABTHERA [Suspect]
     Indication: PRODUCT USED FOR UNKNOWN INDICATION
     Dosage: CYCLE
     Route: 042
     Dates: start: 20110301
  4. LEVOTHYROXINE SODIUM [Concomitant]
  5. TYLENOL (CAPLET) [Concomitant]
     Indication: PREMEDICATION
  6. METHYLPREDNISOLONE [Suspect]
  7. ATACAND [Concomitant]
     Route: 065
  8. METHYLPREDNISOLONE [Suspect]
     Indication: PRODUCT USED FOR UNKNOWN INDICATION
     Route: 065
  9. CARDIZEM [Concomitant]

REACTIONS (2)
  - BONE PAIN [None]
  - BLOOD TRIGLYCERIDES INCREASED [None]
